FAERS Safety Report 5846963-9 (Version None)
Quarter: 2008Q3

REPORT INFORMATION
  Report Type: 
  Country: None (occurrence: None)
  Receive Date: 20080815
  Receipt Date: 20080808
  Transmission Date: 20090109
  Serious: Yes (Hospitalization)
  Sender: FDA-Public Use
  Company Number: DE-PFIZER INC-2008067037

PATIENT
  Age: 48 Year
  Sex: Male

DRUGS (1)
  1. SORTIS [Suspect]
     Dosage: DAILY DOSE:40MG
     Route: 048

REACTIONS (4)
  - MUSCLE SPASMS [None]
  - MYALGIA [None]
  - NEPHROTIC SYNDROME [None]
  - OEDEMA [None]
